FAERS Safety Report 7106177-1 (Version None)
Quarter: 2010Q4

REPORT INFORMATION
  Report Type: 
  Country: None (occurrence: None)
  Receive Date: 20101116
  Receipt Date: 20101105
  Transmission Date: 20110411
  Serious: Yes (Other)
  Sender: FDA-Public Use
  Company Number: GB-JNJFOC-20101002001

PATIENT
  Sex: Male
  Weight: 93.7 kg

DRUGS (5)
  1. STELARA [Suspect]
     Indication: PSORIASIS
     Route: 058
  2. STELARA [Suspect]
     Route: 058
  3. CANDESARTAN CILEXETIL [Concomitant]
     Indication: ILL-DEFINED DISORDER
     Route: 065
  4. SENNA [Concomitant]
     Route: 065
  5. EMOLLIENTS [Concomitant]
     Route: 061

REACTIONS (1)
  - UPPER RESPIRATORY TRACT INFECTION [None]
